FAERS Safety Report 13167795 (Version 1)
Quarter: 2017Q1

REPORT INFORMATION
  Report Type: Spontaneous
  Country: US (occurrence: US)
  Receive Date: 20170131
  Receipt Date: 20170131
  Transmission Date: 20170428
  Serious: Yes (Other)
  Sender: FDA-Public Use
  Company Number: US-SA-2017SA012428

PATIENT

DRUGS (1)
  1. CAMPATH [Suspect]
     Active Substance: ALEMTUZUMAB
     Route: 065

REACTIONS (1)
  - Dialysis [Unknown]
